FAERS Safety Report 7648483-8 (Version None)
Quarter: 2011Q3

REPORT INFORMATION
  Report Type: 
  Country: None (occurrence: None)
  Receive Date: 20110801
  Receipt Date: 20110726
  Transmission Date: 20111222
  Serious: Yes (Hospitalization, Other)
  Sender: FDA-Public Use
  Company Number: US-ABBOTT-11P-163-0839478-00

PATIENT
  Sex: Male
  Weight: 79.45 kg

DRUGS (8)
  1. UNKNOWN MEDICATION [Concomitant]
     Indication: SEASONAL ALLERGY
     Route: 058
  2. SPIRIVA [Concomitant]
     Indication: CHRONIC OBSTRUCTIVE PULMONARY DISEASE
  3. SYNTHROID [Concomitant]
     Indication: HYPOTHYROIDISM
     Route: 048
  4. HUMIRA [Suspect]
     Indication: PSORIASIS
     Route: 058
     Dates: start: 20060101, end: 20110627
  5. PLAVIX [Concomitant]
     Indication: PRODUCT USED FOR UNKNOWN INDICATION
     Route: 048
  6. HUMIRA [Suspect]
     Route: 058
     Dates: start: 20110711
  7. LIPITOR [Concomitant]
     Indication: BLOOD CHOLESTEROL INCREASED
     Route: 048
  8. AMLODIPINE BESYLATE AND BENAZEPRIL HCL [Concomitant]
     Indication: HYPERTENSION
     Dosage: 10/40 MG
     Route: 048

REACTIONS (15)
  - MENISCUS LESION [None]
  - PRURITUS GENITAL [None]
  - PSORIASIS [None]
  - MEMORY IMPAIRMENT [None]
  - HAEMORRHAGE [None]
  - CARPAL TUNNEL SYNDROME [None]
  - NEPHROPATHY [None]
  - ACROCHORDON [None]
  - CHRONIC OBSTRUCTIVE PULMONARY DISEASE [None]
  - HYPOTHYROIDISM [None]
  - DRUG INEFFECTIVE [None]
  - TENDERNESS [None]
  - CEREBROVASCULAR ACCIDENT [None]
  - PRURITUS [None]
  - MASS [None]
